FAERS Safety Report 7779640-8 (Version None)
Quarter: 2011Q3

REPORT INFORMATION
  Report Type: 
  Country: None (occurrence: None)
  Receive Date: 20110927
  Receipt Date: 20110921
  Transmission Date: 20111222
  Serious: Yes (Death, Hospitalization)
  Sender: FDA-Public Use
  Company Number: CA-CELGENEUS-028-C5013-10123102

PATIENT
  Sex: Male
  Weight: 62 kg

DRUGS (38)
  1. LIPITOR [Concomitant]
     Dosage: 10 MILLIGRAM
     Route: 048
     Dates: start: 20040101
  2. NORVASC [Concomitant]
     Indication: HYPERTENSION
     Dosage: 5 MILLIGRAM
     Route: 048
     Dates: start: 20070101
  3. ASPIRIN [Concomitant]
     Indication: THROMBOSIS PROPHYLAXIS
     Dosage: 81 MILLIGRAM
     Route: 048
     Dates: start: 19990101
  4. ATACAND [Concomitant]
     Indication: HYPERTENSION
     Dosage: 16 MILLIGRAM
     Route: 048
     Dates: start: 20070101
  5. AMOXICILLIN AND CLAVULANATE POTASSIUM [Concomitant]
     Dosage: 850 MILLIGRAM
     Route: 048
     Dates: start: 20101019
  6. NEUPOGEN [Concomitant]
     Indication: PROPHYLAXIS
     Dosage: 300 MICROGRAM
     Route: 058
     Dates: start: 20101116, end: 20101122
  7. NEUPOGEN [Concomitant]
     Dosage: 300 MICROGRAM
     Route: 058
     Dates: start: 20100210, end: 20100315
  8. MOXIFLOXACIN [Concomitant]
     Dosage: 400 MILLIGRAM
     Route: 048
     Dates: start: 20101013, end: 20101018
  9. LENALIDOMIDE [Suspect]
     Indication: MULTIPLE MYELOMA
     Dosage: 10 MILLIGRAM
     Route: 048
     Dates: start: 20091215
  10. METFORMIN HCL [Concomitant]
     Dosage: 500 MILLIGRAM
     Route: 048
     Dates: start: 20060101
  11. IMODIUM [Concomitant]
     Dosage: 2 MILLIGRAM
     Route: 048
     Dates: start: 20100405
  12. FOLIC ACID [Concomitant]
     Indication: VITAMIN SUPPLEMENTATION
     Dosage: 5 MILLIGRAM
     Route: 048
     Dates: start: 20101105
  13. PANTOPRAZOLE SODIUM [Concomitant]
     Dosage: 40 MILLIGRAM
     Route: 048
     Dates: start: 20100713
  14. NEUPOGEN [Concomitant]
     Dosage: 300 MICROGRAM
     Route: 058
     Dates: start: 20100921, end: 20100927
  15. NEUPOGEN [Concomitant]
     Dosage: 300 MICROGRAM
     Route: 058
     Dates: start: 20110113, end: 20110117
  16. SLOW-K [Concomitant]
     Route: 048
     Dates: start: 20101022, end: 20101102
  17. LEVOTHYROXINE SODIUM [Concomitant]
     Indication: HYPOTHYROIDISM
     Dosage: .15 MILLIGRAM
     Route: 048
     Dates: start: 19890101
  18. NITRO-DUR [Concomitant]
     Indication: HYPERTENSION
     Dosage: .8 MILLIGRAM
     Route: 048
     Dates: start: 20060101
  19. VITAMIN B-12 [Concomitant]
     Indication: VITAMIN SUPPLEMENTATION
     Dosage: 1000 MILLIGRAM
     Route: 048
     Dates: start: 20101105
  20. EPEX [Concomitant]
     Indication: NEUTROPENIA
     Dosage: 60000 IU (INTERNATIONAL UNIT)
     Route: 058
     Dates: start: 20100211, end: 20101123
  21. DEXAMETHASONE [Suspect]
     Indication: MULTIPLE MYELOMA
     Dosage: 20 MILLIGRAM
     Route: 065
     Dates: start: 20091215
  22. RAMIPRIL [Concomitant]
     Indication: HYPERTENSION
     Dosage: 5 MILLIGRAM
     Route: 048
     Dates: start: 19990101
  23. MAGNESIUM [Concomitant]
     Dosage: 200 MILLIGRAM
     Route: 048
     Dates: start: 20101123
  24. TYLENOL-500 [Concomitant]
     Dosage: 325 MILLIGRAM
     Route: 048
     Dates: start: 20101012, end: 20101014
  25. BISOPROLOL FUMARATE [Concomitant]
     Indication: HYPERTENSION
     Dosage: 10 MILLIGRAM
     Route: 048
     Dates: start: 20050101
  26. GLYBURIDE [Concomitant]
     Dosage: 2.5 MILLIGRAM
     Route: 048
     Dates: start: 20100316
  27. PAMIDRONATE DISODIUM [Concomitant]
     Indication: PROPHYLAXIS
     Dosage: 90 MILLIGRAM
     Route: 041
     Dates: start: 20100423
  28. NEUPOGEN [Concomitant]
     Dosage: 300 MICROGRAM
     Route: 058
     Dates: start: 20101019, end: 20101021
  29. SODIUM CHLORIDE [Concomitant]
     Indication: DEHYDRATION
     Dosage: 500 MILLILITER
     Route: 041
     Dates: start: 20100202, end: 20100202
  30. LENALIDOMIDE [Suspect]
     Dosage: 10 MILLIGRAM
     Route: 048
     Dates: start: 20101123, end: 20101220
  31. DEXAMETHASONE [Suspect]
     Route: 065
     Dates: start: 20101123, end: 20101220
  32. FERROUS GLUCONATE [Concomitant]
     Dosage: 300 MILLIGRAM
     Route: 048
     Dates: start: 20070101
  33. METFORMIN HCL [Concomitant]
     Dosage: 1000 MILLIGRAM
     Route: 048
     Dates: start: 20100112
  34. CALCIUM CARBONATE [Concomitant]
     Dosage: 500 MILLIGRAM
     Route: 048
     Dates: start: 20101123
  35. NEUPOGEN [Concomitant]
     Dosage: 300 MICROGRAM
     Route: 058
     Dates: start: 20101216, end: 20101220
  36. CHLORPROMAZINE [Concomitant]
     Indication: HICCUPS
     Route: 048
     Dates: start: 20100129, end: 20100201
  37. LEVOFLOXACIN [Concomitant]
     Indication: INFECTION PROPHYLAXIS
     Route: 048
     Dates: start: 20100202, end: 20100216
  38. KEFLEX [Concomitant]
     Dosage: 500 MILLIGRAM
     Route: 048
     Dates: start: 20100819, end: 20100827

REACTIONS (1)
  - CARDIO-RESPIRATORY ARREST [None]
